FAERS Safety Report 25509728 (Version 1)
Quarter: 2025Q3

REPORT INFORMATION
  Report Type: Spontaneous
  Country: BR (occurrence: BR)
  Receive Date: 20250703
  Receipt Date: 20250703
  Transmission Date: 20251020
  Serious: Yes (Death, Other)
  Sender: SANOFI AVENTIS
  Company Number: BR-SA-2025SA142189

PATIENT
  Sex: Female

DRUGS (1)
  1. DUPIXENT [Suspect]
     Active Substance: DUPILUMAB
     Dates: start: 2024

REACTIONS (8)
  - Death [Fatal]
  - Pneumothorax [Unknown]
  - Healthcare-associated infection [Unknown]
  - Troponin increased [Unknown]
  - Chest pain [Unknown]
  - Blood pressure increased [Unknown]
  - Vascular malformation [Unknown]
  - Post procedural complication [Unknown]
